FAERS Safety Report 7778102-1 (Version None)
Quarter: 2011Q3

REPORT INFORMATION
  Report Type: 
  Country: None (occurrence: None)
  Receive Date: 20110926
  Receipt Date: 20110916
  Transmission Date: 20111222
  Serious: Yes (Hospitalization)
  Sender: FDA-Public Use
  Company Number: US-BAYER-201037181NA

PATIENT
  Age: 23 Year
  Sex: Female
  Weight: 121 kg

DRUGS (8)
  1. CLOTRIMAZOLE W/BETAMETHASONE DIPROPIONAT [Concomitant]
  2. HYDROCHLOROTHIAZIDE [Concomitant]
  3. AMOXICILLIN [Concomitant]
  4. FEMCON FE [Concomitant]
  5. SULFAMETHOXAZOLE AND TRIMETHOPRIM [Concomitant]
  6. YASMIN [Suspect]
     Dosage: UNK
     Route: 048
     Dates: start: 20070601, end: 20071001
  7. HYDROCODONE BITARTRATE AND ACETAMINOPHEN [Concomitant]
  8. MEDROXYPROGESTERONE [Concomitant]

REACTIONS (5)
  - CHEST PAIN [None]
  - ACUTE MYOCARDIAL INFARCTION [None]
  - INJURY [None]
  - PAIN [None]
  - EMOTIONAL DISTRESS [None]
